FAERS Safety Report 15859506 (Version 1)
Quarter: 2019Q1

REPORT INFORMATION
  Report Type: Spontaneous
  Country: US (occurrence: US)
  Receive Date: 20190123
  Receipt Date: 20190123
  Transmission Date: 20190417
  Serious: No
  Sender: FDA-Public Use
  Company Number: US-ASTRAZENECA-2019SE01750

PATIENT
  Sex: Female

DRUGS (2)
  1. SYMBICORT [Suspect]
     Active Substance: BUDESONIDE\FORMOTEROL FUMARATE DIHYDRATE
     Indication: HYPERSENSITIVITY
     Dosage: ONE PUFF TWICE DAILY UP TO 2 PUFFS TWICE DAILY DEPENDING ON THE SEVERITY OF HER ALLERGIES
     Route: 055
  2. SYMBICORT [Suspect]
     Active Substance: BUDESONIDE\FORMOTEROL FUMARATE DIHYDRATE
     Indication: ASTHMA
     Dosage: ONE PUFF TWICE DAILY UP TO 2 PUFFS TWICE DAILY DEPENDING ON THE SEVERITY OF HER ALLERGIES
     Route: 055

REACTIONS (5)
  - Product use issue [Unknown]
  - Underdose [Unknown]
  - Malaise [Unknown]
  - Asthma [Unknown]
  - Off label use [Unknown]
